FAERS Safety Report 4459241-X (Version None)
Quarter: 2004Q3

REPORT INFORMATION
  Report Type: 
  Country: None (occurrence: None)
  Receive Date: 20040927
  Receipt Date: 20040816
  Transmission Date: 20050211
  Serious: Yes (Hospitalization)
  Sender: FDA-Public Use
  Company Number: PHNU2004DE02893

PATIENT
  Sex: Male

DRUGS (7)
  1. SANDIMMUNE [Suspect]
     Indication: LUNG TRANSPLANT
     Dosage: 70 MG DAILY
     Route: 048
     Dates: start: 19980101
  2. DECORTIN [Suspect]
     Indication: LUNG TRANSPLANT
     Dates: start: 19980101
  3. IMUREK [Suspect]
     Indication: LUNG TRANSPLANT
     Dosage: 50 MG DAILY
     Route: 048
     Dates: start: 19980101
  4. ACYCLOVIR [Concomitant]
     Dosage: 200 MG DAILY, PRN
     Route: 048
     Dates: start: 19980101
  5. SEMPERA [Concomitant]
     Dosage: 2 DF, PRN
     Route: 048
     Dates: start: 19980101
  6. LASIX                                   /SCH/ [Concomitant]
     Indication: RENAL FAILURE
     Dosage: 250 MG DAILY
     Route: 048
     Dates: start: 20000101
  7. FOSAMAX [Concomitant]
     Dosage: 70 MG, QW
     Dates: start: 20020101

REACTIONS (6)
  - ADRENAL INSUFFICIENCY [None]
  - MINERAL DEFICIENCY [None]
  - MUSCLE ATROPHY [None]
  - PERIPHERAL MOTOR NEUROPATHY [None]
  - POLYNEUROPATHY [None]
  - RENAL FAILURE [None]
